FAERS Safety Report 11831669 (Version 1)
Quarter: 2015Q4

REPORT INFORMATION
  Report Type: Spontaneous
  Country: US (occurrence: None)
  Receive Date: 20151211
  Receipt Date: 20151211
  Transmission Date: 20160305
  Serious: Yes (Other)
  Sender: FDA-Public Use
  Company Number: None

PATIENT
  Age: 27 Year
  Sex: Female
  Weight: 53.07 kg

DRUGS (5)
  1. PREDNISONE. [Concomitant]
     Active Substance: PREDNISONE
  2. ACYCLOVIR. [Concomitant]
     Active Substance: ACYCLOVIR
  3. HYALURONIC [Concomitant]
  4. PREDNISONE. [Suspect]
     Active Substance: PREDNISONE
     Indication: RHEUMATOID ARTHRITIS
     Route: 048
     Dates: start: 20070820, end: 20151209
  5. KENALOG SHOTS [Concomitant]

REACTIONS (1)
  - Bipolar disorder [None]

NARRATIVE: CASE EVENT DATE: 20151209
